FAERS Safety Report 23514466 (Version 1)
Quarter: 2024Q1

REPORT INFORMATION
  Report Type: Spontaneous
  Country: DE (occurrence: DE)
  Receive Date: 20240212
  Receipt Date: 20240212
  Transmission Date: 20240410
  Serious: Yes (Other)
  Sender: FDA-Public Use
  Company Number: DE-Ascend Therapeutics US, LLC-2153073

PATIENT
  Age: 4 Year
  Sex: Male

DRUGS (2)
  1. ESTROGEL [Suspect]
     Active Substance: ESTRADIOL
     Route: 062
  2. ESTRADIOL [Suspect]
     Active Substance: ESTRADIOL
     Route: 062

REACTIONS (3)
  - Pseudoprecocious puberty [Recovering/Resolving]
  - Exposure via skin contact [Recovering/Resolving]
  - Gynaecomastia [Recovering/Resolving]
